FAERS Safety Report 16429010 (Version 2)
Quarter: 2020Q1

REPORT INFORMATION
  Report Type: Report from Study
  Country: None (occurrence: US)
  Receive Date: 20190614
  Receipt Date: 20200103
  Transmission Date: 20200409
  Serious: Yes (Other)
  Sender: FDA-Public Use
  Company Number: US-ABBVIE-19K-163-2637462-00

PATIENT
  Age: 61 Year
  Sex: Female
  Weight: 88.53 kg

DRUGS (3)
  1. HUMIRA [Suspect]
     Active Substance: ADALIMUMAB
     Indication: COLITIS ULCERATIVE
     Route: 058
     Dates: start: 201702
  2. JANUVIA [Concomitant]
     Active Substance: SITAGLIPTIN PHOSPHATE
     Indication: DIABETES MELLITUS
  3. JARDIANCE [Concomitant]
     Active Substance: EMPAGLIFLOZIN
     Indication: DIABETES MELLITUS

REACTIONS (8)
  - Sinus congestion [Unknown]
  - Clostridium difficile infection [Recovered/Resolved]
  - Immune system disorder [Unknown]
  - Eczema [Unknown]
  - Alopecia [Unknown]
  - Paranasal sinus discomfort [Unknown]
  - Skin disorder [Unknown]
  - Retinal detachment [Unknown]

NARRATIVE: CASE EVENT DATE: 201901
